FAERS Safety Report 4755206-9 (Version None)
Quarter: 2005Q3

REPORT INFORMATION
  Report Type: 
  Country: None (occurrence: None)
  Receive Date: 20050826
  Receipt Date: 20041129
  Transmission Date: 20060218
  Serious: Yes (Death)
  Sender: FDA-Public Use
  Company Number: KII-2001-0004556

PATIENT
  Age: 28 Year

DRUGS (3)
  1. OXYCONTIN [Suspect]
  2. MARIJUANA (CANNABIS) [Suspect]
  3. ALCOHOL (ETHANOL) [Suspect]

REACTIONS (1)
  - MULTIPLE DRUG OVERDOSE [None]
